FAERS Safety Report 7366840-4 (Version None)
Quarter: 2011Q1

REPORT INFORMATION
  Report Type: 
  Country: None (occurrence: None)
  Receive Date: 20110317
  Receipt Date: 20110317
  Transmission Date: 20110831
  Serious: Yes (Hospitalization)
  Sender: FDA-Public Use
  Company Number: None

PATIENT
  Age: 62 Year
  Sex: Male
  Weight: 70.5 kg

DRUGS (2)
  1. TEMSIROLIMUS 25 MG WYETH [Suspect]
     Indication: HEAD AND NECK CANCER
     Dosage: 15 MG WEELKY IV DRIP
     Route: 041
     Dates: start: 20110216, end: 20110308
  2. ERLOTINIB 150 MG GENENTECH [Suspect]
     Indication: METASTASES TO LUNG
     Dosage: 150 MG DAILY PO
     Route: 048
     Dates: start: 20110216, end: 20110308

REACTIONS (5)
  - NAUSEA [None]
  - DIARRHOEA [None]
  - ELECTROLYTE IMBALANCE [None]
  - DEHYDRATION [None]
  - ABDOMINAL DISTENSION [None]
